FAERS Safety Report 11905203 (Version 1)
Quarter: 2016Q1

REPORT INFORMATION
  Report Type: Spontaneous
  Country: US (occurrence: US)
  Receive Date: 20160109
  Receipt Date: 20160109
  Transmission Date: 20160526
  Serious: No
  Sender: FDA-Public Use
  Company Number: US-JNJFOC-20151203608

PATIENT
  Sex: Male

DRUGS (2)
  1. RISPERDAL [Suspect]
     Active Substance: RISPERIDONE
     Indication: PRODUCT USED FOR UNKNOWN INDICATION
     Route: 065
  2. CLOZARIL [Concomitant]
     Active Substance: CLOZAPINE
     Route: 065

REACTIONS (2)
  - Feeling abnormal [Not Recovered/Not Resolved]
  - Psychotic disorder [Not Recovered/Not Resolved]
